FAERS Safety Report 21858269 (Version 3)
Quarter: 2023Q4

REPORT INFORMATION
  Report Type: Spontaneous
  Country: US (occurrence: US)
  Receive Date: 20230113
  Receipt Date: 20231205
  Transmission Date: 20240109
  Serious: Yes (Other)
  Sender: FDA-Public Use
  Company Number: US-CELLTRION INC.-2023US000223

PATIENT

DRUGS (3)
  1. TRUXIMA [Suspect]
     Active Substance: RITUXIMAB-ABBS
     Indication: Multiple sclerosis
     Dosage: 10 MG EVERY 6 MONTH
     Route: 042
     Dates: start: 202002, end: 20221101
  2. VITAMIN D [Concomitant]
     Active Substance: VITAMIN D NOS
  3. COENZYME Q10 [Concomitant]
     Active Substance: DIETARY SUPPLEMENT\UBIDECARENONE

REACTIONS (5)
  - Urticaria [Recovering/Resolving]
  - Fatigue [Unknown]
  - Pruritus [Recovered/Resolved]
  - Therapy interrupted [Unknown]
  - Off label use [Unknown]

NARRATIVE: CASE EVENT DATE: 20200201
